FAERS Safety Report 7626202-9 (Version None)
Quarter: 2011Q3

REPORT INFORMATION
  Report Type: 
  Country: None (occurrence: None)
  Receive Date: 20110721
  Receipt Date: 20110708
  Transmission Date: 20111222
  Serious: Yes (Hospitalization)
  Sender: FDA-Public Use
  Company Number: PHHY2011DE63661

PATIENT
  Age: 36 Year
  Sex: Male

DRUGS (5)
  1. OLANZAPINE [Concomitant]
  2. GASTROZEPIN [Concomitant]
     Dosage: 100 MG, DAILY
     Dates: start: 20100514, end: 20100726
  3. FLUANXOL [Concomitant]
  4. CLOZAPINE [Suspect]
     Dosage: TITRATION UP TO 600 MG/DAY
  5. RISPERDAL [Concomitant]

REACTIONS (2)
  - MENTAL DISORDER [None]
  - SALIVARY HYPERSECRETION [None]
